FAERS Safety Report 7463300-7 (Version None)
Quarter: 2011Q2

REPORT INFORMATION
  Report Type: 
  Country: None (occurrence: None)
  Receive Date: 20110506
  Receipt Date: 20110503
  Transmission Date: 20111010
  Serious: Yes (Death)
  Sender: FDA-Public Use
  Company Number: FR-ROCHE-775432

PATIENT
  Sex: Female
  Weight: 89 kg

DRUGS (2)
  1. AVASTIN [Suspect]
     Route: 065
     Dates: start: 20110414
  2. TEMOZOLOMIDE [Suspect]
     Route: 048
     Dates: start: 20110414

REACTIONS (1)
  - PULMONARY EMBOLISM [None]
